FAERS Safety Report 4726229-0 (Version None)
Quarter: 2005Q3

REPORT INFORMATION
  Report Type: 
  Country: None (occurrence: None)
  Receive Date: 20050727
  Receipt Date: 20050718
  Transmission Date: 20060218
  Serious: Yes (Hospitalization)
  Sender: FDA-Public Use
  Company Number: ZA-SANOFI-SYNTHELABO-F01200501281

PATIENT
  Sex: Male
  Weight: 76 kg

DRUGS (5)
  1. CLOPIDOGREL BISULFATE [Suspect]
     Indication: ACUTE CORONARY SYNDROME
     Dosage: UNK
     Dates: start: 20050520
  2. BISOPROLOL [Concomitant]
     Indication: ANGINA PECTORIS
     Dosage: UNK
     Dates: start: 20050520
  3. ECOTRIN [Concomitant]
     Indication: CORONARY ARTERY DISEASE
     Dosage: UNK
     Dates: start: 20050523
  4. SIMVASTATIN [Concomitant]
     Indication: HYPERCHOLESTEROLAEMIA
     Dosage: UNK
     Dates: start: 20050520
  5. OMEPRAZOLE [Concomitant]
     Indication: DYSPEPSIA
     Dosage: UNK
     Dates: start: 20050602

REACTIONS (1)
  - GASTROOESOPHAGEAL REFLUX DISEASE [None]
